FAERS Safety Report 7794744-1 (Version None)
Quarter: 2011Q4

REPORT INFORMATION
  Report Type: 
  Country: None (occurrence: None)
  Receive Date: 20111004
  Receipt Date: 20110928
  Transmission Date: 20120403
  Serious: No
  Sender: FDA-Public Use
  Company Number: US-PFIZER INC-2011231969

PATIENT
  Sex: Female
  Weight: 65.76 kg

DRUGS (2)
  1. LYRICA [Suspect]
     Indication: FIBROMYALGIA
     Dosage: 50 MG, 2X/DAY
     Dates: start: 20110801
  2. TRAMADOL HCL [Interacting]
     Indication: PAIN
     Dosage: UNK

REACTIONS (6)
  - SALIVARY HYPERSECRETION [None]
  - INSOMNIA [None]
  - TREMOR [None]
  - DRUG INTERACTION [None]
  - PAIN [None]
  - NERVOUSNESS [None]
